FAERS Safety Report 12982027 (Version 3)
Quarter: 2018Q1

REPORT INFORMATION
  Report Type: Other
  Country: US (occurrence: US)
  Receive Date: 20161129
  Receipt Date: 20180130
  Transmission Date: 20180508
  Serious: Yes (Hospitalization)
  Sender: FDA-Public Use
  Company Number: US-ACORDA-ACO_130679_2016

PATIENT
  Age: 56 Year
  Sex: Male

DRUGS (2)
  1. AMPYRA [Suspect]
     Active Substance: DALFAMPRIDINE
     Indication: PRODUCT USED FOR UNKNOWN INDICATION
     Dosage: 10 MG, BID
     Route: 048
     Dates: start: 20130620, end: 201608
  2. AMPYRA [Suspect]
     Active Substance: DALFAMPRIDINE
     Dosage: 10 MG, BID
     Route: 048

REACTIONS (3)
  - Cerebrovascular accident [Recovering/Resolving]
  - Depressed mood [Not Recovered/Not Resolved]
  - Thrombophlebitis [Recovered/Resolved]

NARRATIVE: CASE EVENT DATE: 201608
